FAERS Safety Report 19405902 (Version 1)
Quarter: 2021Q2

REPORT INFORMATION
  Report Type: Spontaneous
  Country: IT (occurrence: IT)
  Receive Date: 20210611
  Receipt Date: 20210611
  Transmission Date: 20210717
  Serious: Yes (Other)
  Sender: FDA-Public Use
  Company Number: IT-MYLANLABS-2021M1034019

PATIENT
  Age: 62 Year
  Sex: Male

DRUGS (3)
  1. DEXAMETHASONE. [Suspect]
     Active Substance: DEXAMETHASONE
     Indication: COVID-19
     Dosage: UNK
     Dates: start: 20201019
  2. ENOXAPARIN [Suspect]
     Active Substance: ENOXAPARIN
     Indication: COVID-19
     Dosage: UNK
     Route: 058
  3. REMDESIVIR. [Suspect]
     Active Substance: REMDESIVIR
     Indication: COVID-19
     Dosage: 100 MILLIGRAM, QD
     Route: 042
     Dates: start: 20201023

REACTIONS (2)
  - Off label use [Unknown]
  - Hypertransaminasaemia [Unknown]

NARRATIVE: CASE EVENT DATE: 20201023
